FAERS Safety Report 7308219-7 (Version None)
Quarter: 2011Q1

REPORT INFORMATION
  Report Type: 
  Country: None (occurrence: None)
  Receive Date: 20110210
  Receipt Date: 20110125
  Transmission Date: 20110831
  Serious: Yes (Hospitalization)
  Sender: FDA-Public Use
  Company Number: 2010P1002796

PATIENT
  Age: 24 Year
  Sex: Female
  Weight: 70.7611 kg

DRUGS (4)
  1. MICONAZOLE NITRATE [Suspect]
     Indication: VULVOVAGINAL MYCOTIC INFECTION
     Dosage: 1 APPLICATOR; QDHS; VAG,1 APPLICATOR QDHS;VAG
     Route: 067
     Dates: start: 20100201, end: 20100201
  2. MICONAZOLE NITRATE [Suspect]
     Indication: VULVOVAGINAL MYCOTIC INFECTION
     Dosage: 1 APPLICATOR; QDHS; VAG,1 APPLICATOR QDHS;VAG
     Route: 067
     Dates: start: 20101107, end: 20101110
  3. IRON [Concomitant]
  4. YAZ [Concomitant]

REACTIONS (8)
  - ABDOMINAL PAIN [None]
  - MUSCLE SPASMS [None]
  - VAGINAL HAEMORRHAGE [None]
  - PELVIC PAIN [None]
  - DYSFUNCTIONAL UTERINE BLEEDING [None]
  - DIZZINESS [None]
  - BLOOD PRESSURE DECREASED [None]
  - IRON DEFICIENCY ANAEMIA [None]
